FAERS Safety Report 21070956 (Version 1)
Quarter: 2022Q3

REPORT INFORMATION
  Report Type: Spontaneous
  Country: JP (occurrence: JP)
  Receive Date: 20220712
  Receipt Date: 20220712
  Transmission Date: 20221026
  Serious: Yes (Other)
  Sender: FDA-Public Use
  Company Number: JP-CHUGAI-2022022099

PATIENT
  Age: 58 Year
  Sex: Male

DRUGS (2)
  1. ACTEMRA [Suspect]
     Active Substance: TOCILIZUMAB
     Indication: Rheumatoid arthritis
     Dosage: ONCE/4WEEKS
     Route: 041
     Dates: start: 202005
  2. ACTEMRA [Suspect]
     Active Substance: TOCILIZUMAB
     Indication: Rheumatoid arthritis
     Route: 058
     Dates: start: 2021

REACTIONS (7)
  - Eczema [Not Recovered/Not Resolved]
  - Dermatitis [Unknown]
  - Sneezing [Unknown]
  - Erythema [Unknown]
  - Cough [Unknown]
  - Skin fissures [Unknown]
  - Erythema [Unknown]

NARRATIVE: CASE EVENT DATE: 20220101
